FAERS Safety Report 7205622-0 (Version None)
Quarter: 2010Q4

REPORT INFORMATION
  Report Type: 
  Country: None (occurrence: None)
  Receive Date: 20101231
  Receipt Date: 20101221
  Transmission Date: 20110411
  Serious: Yes (Other)
  Sender: FDA-Public Use
  Company Number: US-PFIZER INC-2010177211

PATIENT
  Sex: Female
  Weight: 63 kg

DRUGS (5)
  1. LIPITOR [Suspect]
     Indication: BLOOD CHOLESTEROL
     Dosage: 10 MG, 1X/DAY
  2. SYNTHROID [Concomitant]
     Dosage: UNK
  3. PREMARIN [Concomitant]
     Dosage: UNIT DOSE: 0.3;
  4. DIOVAN HCT [Concomitant]
     Dosage: UNK
  5. ACETYLSALICYLIC ACID [Concomitant]
     Dosage: UNK

REACTIONS (2)
  - ERYTHEMA [None]
  - PRURITUS [None]
